FAERS Safety Report 6975034-3 (Version None)
Quarter: 2010Q3

REPORT INFORMATION
  Report Type: 
  Country: None (occurrence: None)
  Receive Date: 20100910
  Receipt Date: 20090127
  Transmission Date: 20110219
  Serious: No
  Sender: FDA-Public Use
  Company Number: US-WYE-H07967509

PATIENT
  Sex: Female
  Weight: 136.2 kg

DRUGS (6)
  1. PRISTIQ [Suspect]
     Indication: DEPRESSION
     Route: 048
     Dates: start: 20081220, end: 20090101
  2. PRISTIQ [Suspect]
     Dosage: TAPERED TO 50 MG EVERY OTHER DAY FOR A WEEK
     Route: 048
     Dates: start: 20090101
  3. RISPERDAL [Concomitant]
  4. PROVIGIL [Concomitant]
  5. CLONAZEPAM [Concomitant]
  6. DIOVAN [Concomitant]

REACTIONS (5)
  - AGGRESSION [None]
  - ANXIETY [None]
  - DRUG WITHDRAWAL SYNDROME [None]
  - GASTROOESOPHAGEAL REFLUX DISEASE [None]
  - PERSONALITY CHANGE [None]
